FAERS Safety Report 7009126-X (Version None)
Quarter: 2010Q3

REPORT INFORMATION
  Report Type: 
  Country: None (occurrence: None)
  Receive Date: 20100923
  Receipt Date: 20100916
  Transmission Date: 20110219
  Serious: Yes (Hospitalization, Other)
  Sender: FDA-Public Use
  Company Number: DE-BAYER-201024897GPV

PATIENT
  Age: 62 Year
  Sex: Male
  Weight: 93 kg

DRUGS (34)
  1. SORAFENIB [Suspect]
     Indication: HEPATIC NEOPLASM MALIGNANT
     Dosage: TOTAL DAILY DOSE: 800 MG  UNIT DOSE: 200 MG
     Route: 048
     Dates: start: 20100514, end: 20100606
  2. SORAFENIB [Suspect]
     Dosage: TOTAL DAILY DOSE: 800 MG  UNIT DOSE: 200 MG
     Route: 048
     Dates: start: 20100607, end: 20100712
  3. SORAFENIB [Suspect]
     Dosage: TOTAL DAILY DOSE: 800 MG  UNIT DOSE: 200 MG
     Route: 048
     Dates: start: 20100712, end: 20100726
  4. SORAFENIB [Suspect]
     Dosage: TOTAL DAILY DOSE: 800 MG
     Route: 048
     Dates: start: 20100426, end: 20100510
  5. SORAFENIB [Suspect]
     Dates: start: 20100511, end: 20100513
  6. SORAFENIB [Suspect]
     Dosage: TOTAL DAILY DOSE: 400 MG  UNIT DOSE: 200 MG
     Route: 048
     Dates: start: 20100727
  7. PLACEBO TO ERLOTINIB [Suspect]
     Indication: HEPATIC NEOPLASM MALIGNANT
     Dosage: TOTAL DAILY DOSE: 150 MG
     Route: 048
     Dates: start: 20100426, end: 20100510
  8. PLACEBO TO ERLOTINIB [Suspect]
     Dates: start: 20100713, end: 20100818
  9. PLACEBO TO ERLOTINIB [Suspect]
     Dates: start: 20100514, end: 20100607
  10. PLACEBO TO ERLOTINIB [Suspect]
     Dates: start: 20100819
  11. PLACEBO TO ERLOTINIB [Suspect]
     Dates: start: 20100608, end: 20100712
  12. PLACEBO TO ERLOTINIB [Suspect]
     Dates: start: 20100511, end: 20100513
  13. PROPRANOLOL [Concomitant]
     Indication: PROPHYLAXIS
     Route: 048
     Dates: start: 19980101
  14. RANITIDINE HCL [Concomitant]
     Indication: PROPHYLAXIS AGAINST GASTROINTESTINAL ULCER
     Route: 048
     Dates: start: 20100315
  15. SPIRONOLACTONE [Concomitant]
     Indication: PROPHYLAXIS
     Route: 048
     Dates: start: 20091101, end: 20100507
  16. SPIRONOLACTONE [Concomitant]
     Dates: start: 20100707, end: 20100818
  17. FUROSEMID [Concomitant]
     Indication: PROPHYLAXIS
     Route: 048
     Dates: start: 20091101, end: 20100507
  18. LACTULOSE [Concomitant]
     Indication: PROPHYLAXIS
     Route: 048
     Dates: start: 20091101, end: 20100614
  19. LACTULOSE [Concomitant]
     Dates: start: 20100614
  20. OXAZEPAM [Concomitant]
     Indication: ANXIETY
     Route: 048
     Dates: start: 20091201
  21. APYDAN [Concomitant]
     Indication: EPILEPSY
  22. APYDAN [Concomitant]
     Dates: start: 20100521
  23. APYDAN [Concomitant]
     Dates: start: 20030101, end: 20100520
  24. VITAMIN B1 TAB [Concomitant]
     Indication: PROPHYLAXIS
     Dates: start: 20091101
  25. DIAZEPAM RECTUBES [Concomitant]
     Indication: CONVULSION PROPHYLAXIS
     Dates: start: 20030101
  26. ELEKTROLYT-INFUSIONSLOESUNG 153 [Concomitant]
     Indication: ENCEPHALOPATHY
     Dates: start: 20100507, end: 20100507
  27. STEROFUNDIN [Concomitant]
     Indication: DEHYDRATION
     Dates: start: 20100507, end: 20100507
  28. LOPERAMIDE [Concomitant]
     Indication: DIARRHOEA
     Dates: start: 20100719, end: 20100730
  29. LOPERAMIDE [Concomitant]
     Dates: start: 20100607
  30. UREADERM [Concomitant]
     Indication: PALMAR-PLANTAR ERYTHRODYSAESTHESIA SYNDROME
     Dates: start: 20100607
  31. EPLERENONE [Concomitant]
     Indication: PROPHYLAXIS
     Dates: start: 20100819
  32. FERRO DUODENAL [Concomitant]
     Indication: HAEMOGLOBIN DECREASED
     Dates: start: 20100819
  33. ACESAL CALCIUM [Concomitant]
     Indication: HYPOCALCAEMIA
     Dates: start: 20100817
  34. VITAMIN D [Concomitant]
     Indication: HYPOCALCAEMIA
     Dosage: 1000 IE
     Dates: start: 20100817

REACTIONS (3)
  - ABDOMINAL HERNIA [None]
  - ANGIODYSPLASIA [None]
  - HEPATIC ENCEPHALOPATHY [None]
